FAERS Safety Report 5311157-2 (Version None)
Quarter: 2007Q2

REPORT INFORMATION
  Report Type: 
  Country: None (occurrence: None)
  Receive Date: 20070426
  Receipt Date: 20070426
  Transmission Date: 20071010
  Serious: Yes (Life-Threatening)
  Sender: FDA-Public Use
  Company Number: None

PATIENT
  Age: 73 Year
  Sex: Female
  Weight: 56.6996 kg

DRUGS (1)
  1. PROTAMINE SULFATE [Suspect]
     Indication: CARDIAC OPERATION
     Dates: start: 20070329

REACTIONS (2)
  - HYPOTENSION [None]
  - PULMONARY HYPERTENSION [None]
